FAERS Safety Report 6929313-6 (Version None)
Quarter: 2010Q3

REPORT INFORMATION
  Report Type: 
  Country: None (occurrence: None)
  Receive Date: 20100818
  Receipt Date: 20100809
  Transmission Date: 20110219
  Serious: Yes (Hospitalization)
  Sender: FDA-Public Use
  Company Number: KR-TEVA-244180ISR

PATIENT
  Age: 51 Year
  Sex: Male

DRUGS (2)
  1. CISPLATIN [Suspect]
  2. EPIRUBICIN [Suspect]

REACTIONS (1)
  - HEPATITIS [None]
